FAERS Safety Report 9492349 (Version 2)
Quarter: 2013Q3

REPORT INFORMATION
  Report Type: Spontaneous
  Country: FR (occurrence: FR)
  Receive Date: 20130830
  Receipt Date: 20130830
  Transmission Date: 20140515
  Serious: Yes (Hospitalization)
  Sender: FDA-Public Use
  Company Number: PHHY2012FR105974

PATIENT
  Age: 55 Year
  Sex: Female

DRUGS (2)
  1. TASIGNA [Suspect]
     Indication: CHRONIC MYELOID LEUKAEMIA
     Route: 048
     Dates: end: 201104
  2. TASIGNA [Suspect]
     Dosage: 200 MG, QD
     Route: 048
     Dates: start: 201104

REACTIONS (11)
  - Hypothyroidism [Unknown]
  - Myalgia [Recovered/Resolved]
  - Muscular weakness [Unknown]
  - Feeling cold [Unknown]
  - Constipation [Unknown]
  - Weight increased [Recovered/Resolved]
  - Psychomotor retardation [Unknown]
  - Blood creatine phosphokinase increased [Unknown]
  - Asthenia [Recovered/Resolved]
  - Bradycardia [Unknown]
  - Palpitations [Unknown]
